FAERS Safety Report 22362253 (Version 1)
Quarter: 2023Q2

REPORT INFORMATION
  Report Type: Spontaneous
  Country: CO (occurrence: CO)
  Receive Date: 20230524
  Receipt Date: 20230524
  Transmission Date: 20230721
  Serious: Yes (Other)
  Sender: FDA-Public Use
  Company Number: CO-PFIZER INC-PV202300091079

PATIENT
  Age: 60 Year
  Sex: Male

DRUGS (3)
  1. SUTENT [Suspect]
     Active Substance: SUNITINIB MALATE
     Indication: Renal cancer
     Dosage: 50 MG
     Route: 048
  2. SUTENT [Suspect]
     Active Substance: SUNITINIB MALATE
     Indication: Renal cancer
     Dosage: 37.5 MG
     Route: 048
     Dates: start: 202210
  3. SUTENT [Suspect]
     Active Substance: SUNITINIB MALATE
     Indication: Lung disorder

REACTIONS (2)
  - Renal surgery [Not Recovered/Not Resolved]
  - Platelet count decreased [Unknown]
